FAERS Safety Report 10516337 (Version 1)
Quarter: 2014Q4

REPORT INFORMATION
  Report Type: Report from Study
  Country: FR (occurrence: IT)
  Receive Date: 20141014
  Receipt Date: 20141014
  Transmission Date: 20150528
  Serious: Yes (Other)
  Sender: FDA-Public Use
  Company Number: FR-MYLANLABS-2014M1006691

PATIENT

DRUGS (2)
  1. CYSTAGON [Suspect]
     Active Substance: CYSTEAMINE BITARTRATE
     Dosage: 1800 MG, QD
     Route: 048
     Dates: end: 20040920
  2. CYSTAGON [Suspect]
     Active Substance: CYSTEAMINE BITARTRATE
     Indication: CYSTINOSIS
     Dosage: 450 MG, QD
     Route: 048
     Dates: start: 19950825

REACTIONS (2)
  - Abnormal behaviour [Not Recovered/Not Resolved]
  - Mental retardation [Not Recovered/Not Resolved]
